FAERS Safety Report 13824449 (Version 5)
Quarter: 2017Q3

REPORT INFORMATION
  Report Type: Spontaneous
  Country: US (occurrence: US)
  Receive Date: 20170802
  Receipt Date: 20170829
  Transmission Date: 20171127
  Serious: Yes (Death, Hospitalization, Other)
  Sender: FDA-Public Use
  Company Number: US-GLAXOSMITHKLINE-US2017GSK119129

PATIENT
  Age: 56 Year
  Sex: Female

DRUGS (2)
  1. FLOLAN [Suspect]
     Active Substance: EPOPROSTENOL SODIUM
     Indication: PULMONARY ARTERIAL HYPERTENSION
  2. FLOLAN [Suspect]
     Active Substance: EPOPROSTENOL SODIUM
     Indication: PULMONARY ARTERIAL HYPERTENSION
     Dosage: 33.4 DF, CO
     Dates: start: 20021108, end: 201708

REACTIONS (9)
  - Haemodialysis [Unknown]
  - End stage renal disease [Unknown]
  - Dialysis [Recovered/Resolved]
  - General physical health deterioration [Unknown]
  - Gastrointestinal haemorrhage [Unknown]
  - Palliative care [Unknown]
  - Hospitalisation [Unknown]
  - Death [Fatal]
  - Endotracheal intubation [Unknown]

NARRATIVE: CASE EVENT DATE: 20170728
